FAERS Safety Report 18995151 (Version 1)
Quarter: 2021Q1

REPORT INFORMATION
  Report Type: Report from Study
  Country: None (occurrence: US)
  Receive Date: 20210311
  Receipt Date: 20210311
  Transmission Date: 20210420
  Serious: Yes (Death)
  Sender: FDA-Public Use
  Company Number: US-ABBVIE-21K-163-3809656-00

PATIENT
  Age: 72 Year
  Sex: Male

DRUGS (4)
  1. VENCLEXTA [Suspect]
     Active Substance: VENETOCLAX
     Dosage: 100 MG ON DAY 3
     Route: 048
     Dates: start: 20210127, end: 20210127
  2. VENCLEXTA [Suspect]
     Active Substance: VENETOCLAX
     Dosage: 50 MG ON DAY 2
     Route: 048
     Dates: start: 20210126, end: 20210126
  3. VENCLEXTA [Suspect]
     Active Substance: VENETOCLAX
     Dosage: 150 MG DAILY THEREAFTER
     Route: 048
     Dates: start: 20210128, end: 2021
  4. VENCLEXTA [Suspect]
     Active Substance: VENETOCLAX
     Indication: ACUTE MYELOID LEUKAEMIA
     Route: 048
     Dates: start: 20210125, end: 20210125

REACTIONS (1)
  - Death [Fatal]

NARRATIVE: CASE EVENT DATE: 20210220
